FAERS Safety Report 8410035-X (Version None)
Quarter: 2012Q2

REPORT INFORMATION
  Report Type: 
  Country: None (occurrence: None)
  Receive Date: 20120605
  Receipt Date: 20120523
  Transmission Date: 20120825
  Serious: Yes (Hospitalization, Other)
  Sender: FDA-Public Use
  Company Number: US-ENDO PHARMACEUTICALS INC.-OPCR20121110

PATIENT
  Sex: Male

DRUGS (6)
  1. OPANA ER [Concomitant]
     Dosage: UNKNOWN
     Route: 048
     Dates: start: 20120501, end: 20120501
  2. OPANA ER [Suspect]
     Indication: PAIN
     Route: 048
     Dates: start: 20120301, end: 20120501
  3. OPANA ER [Suspect]
     Route: 048
     Dates: start: 20120501, end: 20120501
  4. OPANA ER [Suspect]
     Route: 048
     Dates: start: 20120301, end: 20120501
  5. OPANA ER [Suspect]
     Route: 048
     Dates: start: 20120501, end: 20120501
  6. OPANA ER [Concomitant]
     Dosage: UNKNOWN
     Route: 048
     Dates: end: 20120101

REACTIONS (5)
  - SWELLING FACE [None]
  - OEDEMA PERIPHERAL [None]
  - FEELING ABNORMAL [None]
  - NAUSEA [None]
  - RECTAL HAEMORRHAGE [None]
